FAERS Safety Report 5659751-3 (Version None)
Quarter: 2008Q1

REPORT INFORMATION
  Report Type: 
  Country: None (occurrence: None)
  Receive Date: 20080311
  Receipt Date: 20070710
  Transmission Date: 20080703
  Serious: No
  Sender: FDA-Public Use
  Company Number: US-BAYER-200712192BCC

PATIENT
  Age: 81 Year
  Sex: Female
  Weight: 57 kg

DRUGS (3)
  1. ALEVE [Suspect]
     Indication: MUSCLE SPASMS
     Route: 048
     Dates: start: 20060701
  2. HYDROCHLOROTHIAZIDE [Concomitant]
  3. CALCIUM [Concomitant]

REACTIONS (1)
  - MUSCLE SPASMS [None]
